FAERS Safety Report 8943121 (Version 2)
Quarter: 2013Q3

REPORT INFORMATION
  Report Type: Spontaneous
  Country: FR (occurrence: FR)
  Receive Date: 20121204
  Receipt Date: 20130731
  Transmission Date: 20140515
  Serious: Yes (Hospitalization)
  Sender: FDA-Public Use
  Company Number: PHHY2012FR110213

PATIENT
  Age: 59 Year
  Sex: Female

DRUGS (2)
  1. GILENYA [Suspect]
     Dosage: 0.5 MG, QD
     Route: 048
     Dates: start: 201211
  2. MICARDIS [Concomitant]
     Indication: HYPERTENSION
     Dosage: 80 MG, QD

REACTIONS (6)
  - Cerebrovascular accident [Unknown]
  - Hemiparesis [Unknown]
  - Hemiplegia [Unknown]
  - Haematoma [Unknown]
  - Hypertension [Recovered/Resolved]
  - Ventricular hypertrophy [Unknown]
